FAERS Safety Report 6198911-2 (Version None)
Quarter: 2009Q2

REPORT INFORMATION
  Report Type: 
  Country: None (occurrence: None)
  Receive Date: 20090522
  Receipt Date: 20090513
  Transmission Date: 20091009
  Serious: Yes (Hospitalization)
  Sender: FDA-Public Use
  Company Number: NL-WYE-H09362009

PATIENT
  Sex: Male

DRUGS (3)
  1. PANTOZOL [Suspect]
     Indication: ABDOMINAL PAIN
     Dosage: 40 MG,FREQUENCY UNKNOWN
     Route: 048
     Dates: start: 20080101
  2. LANSOPRAZOLE [Suspect]
     Indication: ABDOMINAL PAIN
     Dosage: 30 MG, FREQUENCY UNKNOWN
     Route: 048
     Dates: start: 20070101
  3. OMEPRAZOLE [Suspect]
     Route: 048
     Dates: start: 20070101, end: 20090101

REACTIONS (3)
  - HYPOCALCAEMIA [None]
  - HYPOKALAEMIA [None]
  - HYPOMAGNESAEMIA [None]
